FAERS Safety Report 5719822-X (Version None)
Quarter: 2008Q2

REPORT INFORMATION
  Report Type: 
  Country: None (occurrence: None)
  Receive Date: 20080428
  Receipt Date: 20080417
  Transmission Date: 20081010
  Serious: Yes (Other)
  Sender: FDA-Public Use
  Company Number: DE-MERCK-0802DEU00074

PATIENT
  Age: 24 Year
  Sex: Male
  Weight: 75 kg

DRUGS (1)
  1. PROPECIA [Suspect]
     Indication: ALOPECIA
     Route: 048
     Dates: start: 20040101, end: 20060101

REACTIONS (4)
  - MUSCULOSKELETAL DISCOMFORT [None]
  - OSTEOARTHRITIS [None]
  - OSTEONECROSIS [None]
  - OVERDOSE [None]
